FAERS Safety Report 7589566-0 (Version None)
Quarter: 2011Q3

REPORT INFORMATION
  Report Type: 
  Country: None (occurrence: None)
  Receive Date: 20110705
  Receipt Date: 20110630
  Transmission Date: 20111222
  Serious: Yes (Hospitalization, Other)
  Sender: FDA-Public Use
  Company Number: US-PFIZER INC-2011146996

PATIENT
  Sex: Female
  Weight: 78.005 kg

DRUGS (22)
  1. FUROSEMIDE [Concomitant]
     Dosage: UNK
  2. HYDROCODONE [Concomitant]
     Dosage: UNK
  3. ALENDRONATE SODIUM [Concomitant]
     Dosage: UNK
  4. ZINC [Concomitant]
     Dosage: UNK
  5. SOMA [Concomitant]
     Dosage: UNK
  6. GLIPIZIDE [Concomitant]
     Dosage: UNK
  7. ACETYLSALICYLIC ACID [Concomitant]
     Dosage: 81 MG, UNK
  8. GUAIFENESIN [Concomitant]
     Dosage: UNK
  9. SEROQUEL [Concomitant]
     Dosage: UNK
  10. GEMFIBROZIL [Concomitant]
     Dosage: UNK
  11. SERTRALINE [Concomitant]
     Dosage: UNK
  12. LYRICA [Suspect]
     Indication: FIBROMYALGIA
     Dosage: 50 MG, 3X/DAY
     Route: 048
  13. PREDNISONE [Concomitant]
     Dosage: UNK
  14. TRAZODONE [Concomitant]
     Dosage: UNK
  15. ALPRAZOLAM [Concomitant]
     Dosage: UNK
  16. CALCIUM [Concomitant]
     Dosage: UNK
  17. MAGNESIUM [Concomitant]
     Dosage: UNK
  18. BENADRYL [Concomitant]
     Dosage: UNK
  19. METFORMIN [Concomitant]
     Dosage: UNK
  20. LEVOTHYROXINE [Concomitant]
     Dosage: UNK
  21. ALBUTEROL SULFATE AUTOHALER [Concomitant]
     Dosage: UNK
  22. VITAMIN D [Concomitant]
     Dosage: UNK

REACTIONS (2)
  - OEDEMA PERIPHERAL [None]
  - PNEUMONIA [None]
